FAERS Safety Report 8067621-9 (Version None)
Quarter: 2012Q1

REPORT INFORMATION
  Report Type: 
  Country: None (occurrence: None)
  Receive Date: 20120124
  Receipt Date: 20120119
  Transmission Date: 20120608
  Serious: Yes (Hospitalization)
  Sender: FDA-Public Use
  Company Number: CA-ABBOTT-11P-028-0883490-00

PATIENT
  Age: 73 Year
  Sex: Male
  Weight: 96.248 kg

DRUGS (7)
  1. LIPIDIL [Suspect]
     Indication: DYSLIPIDAEMIA
     Dosage: 1/2 TAB ONCE AT 17:30
     Route: 048
     Dates: start: 20110322, end: 20110322
  2. PREVACID [Concomitant]
     Indication: PRODUCT USED FOR UNKNOWN INDICATION
  3. ASPIRIN [Concomitant]
     Indication: PRODUCT USED FOR UNKNOWN INDICATION
  4. METOPROLOL TARTRATE [Concomitant]
     Indication: PRODUCT USED FOR UNKNOWN INDICATION
  5. MICARDIS [Concomitant]
     Indication: PRODUCT USED FOR UNKNOWN INDICATION
  6. LIPIDIL [Suspect]
     Dosage: ONCE
     Route: 048
  7. PLAVIX [Concomitant]
     Indication: PRODUCT USED FOR UNKNOWN INDICATION

REACTIONS (2)
  - HYPERTENSION [None]
  - ANGINA PECTORIS [None]
